FAERS Safety Report 4307192-3 (Version None)
Quarter: 2004Q1

REPORT INFORMATION
  Report Type: 
  Country: None (occurrence: None)
  Receive Date: 20040225
  Receipt Date: 20031213
  Transmission Date: 20041129
  Serious: Yes (Hospitalization)
  Sender: FDA-Public Use
  Company Number: KII-2003-0007203

PATIENT
  Age: 71 Year
  Sex: Female

DRUGS (7)
  1. MORPHINE [Suspect]
     Indication: PAIN
     Dosage: 1 ML, SEE TEXT, ORAL
     Route: 048
     Dates: end: 20031213
  2. DIGOXIN [Concomitant]
  3. FUROSEMIDE [Concomitant]
  4. OTHER HAEMATOLOGICAL AGENTS [Concomitant]
  5. METHOCARBAMOL [Concomitant]
  6. OTHER GASTROINTESTINAL PREPARATION [Concomitant]
  7. OXYGEN (OXYGEN) [Concomitant]

REACTIONS (2)
  - HALLUCINATION, VISUAL [None]
  - MEDICATION ERROR [None]
